FAERS Safety Report 12535342 (Version 3)
Quarter: 2016Q3

REPORT INFORMATION
  Report Type: Spontaneous
  Country: US (occurrence: US)
  Receive Date: 20160707
  Receipt Date: 20160808
  Transmission Date: 20161109
  Serious: No
  Sender: FDA-Public Use
  Company Number: US-BEH-2016058099

PATIENT
  Sex: Female
  Weight: 81 kg

DRUGS (5)
  1. EPI-PEN AUTOINJECTOR [Concomitant]
  2. HIZENTRA [Suspect]
     Active Substance: HUMAN IMMUNOGLOBULIN G
     Indication: IMMUNODEFICIENCY COMMON VARIABLE
     Route: 058
     Dates: start: 20150713
  3. DIPHENHYDRAMINE. [Concomitant]
     Active Substance: DIPHENHYDRAMINE
  4. ACETAMINOPHEN. [Concomitant]
     Active Substance: ACETAMINOPHEN
  5. LMX [Concomitant]
     Active Substance: LIDOCAINE

REACTIONS (2)
  - Oropharyngeal pain [Unknown]
  - Cough [Unknown]
